FAERS Safety Report 18384980 (Version 1)
Quarter: 2020Q4

REPORT INFORMATION
  Report Type: Spontaneous
  Country: JP (occurrence: JP)
  Receive Date: 20201015
  Receipt Date: 20201015
  Transmission Date: 20210114
  Serious: Yes (Hospitalization, Other)
  Sender: FDA-Public Use
  Company Number: JP-ORION CORPORATION ORION PHARMA-ENT 2020-0070

PATIENT
  Age: 88 Year
  Sex: Female
  Weight: 34.3 kg

DRUGS (14)
  1. FUROSEMIDE. [Concomitant]
     Active Substance: FUROSEMIDE
     Route: 065
     Dates: start: 20200714
  2. SPIRONOLACTONE. [Concomitant]
     Active Substance: SPIRONOLACTONE
     Route: 065
  3. BEZAFIBRATE [Concomitant]
     Active Substance: BEZAFIBRATE
     Route: 065
  4. OMEPRAZOLE. [Concomitant]
     Active Substance: OMEPRAZOLE
     Route: 065
  5. FEBURIC [Concomitant]
     Active Substance: FEBUXOSTAT
     Route: 065
  6. BAYASPIRIN [Concomitant]
     Active Substance: ASPIRIN
     Route: 065
  7. BEPOTASTINE BESILATE [Concomitant]
     Active Substance: BEPOTASTINE BESYLATE
     Route: 065
  8. PARKISTON [Concomitant]
     Active Substance: CARBIDOPA\LEVODOPA
     Route: 065
  9. NITRODERM [Concomitant]
     Active Substance: NITROGLYCERIN
     Route: 065
  10. AMLODIPINE [Concomitant]
     Active Substance: AMLODIPINE BESYLATE
     Route: 065
  11. REBAMIPIDE [Concomitant]
     Active Substance: REBAMIPIDE
     Route: 065
  12. LANIRAPID [Concomitant]
     Active Substance: METILDIGOXIN
     Route: 065
  13. LIXIANA [Concomitant]
     Active Substance: EDOXABAN TOSYLATE
     Route: 065
  14. COMTAN [Suspect]
     Active Substance: ENTACAPONE
     Indication: PRODUCT USED FOR UNKNOWN INDICATION
     Route: 048

REACTIONS (12)
  - Anaemia folate deficiency [Unknown]
  - Mucosal prolapse syndrome [Unknown]
  - Bundle branch block right [Unknown]
  - Communication disorder [Unknown]
  - Pleural effusion [Unknown]
  - Atrial fibrillation [Unknown]
  - Cachexia [Unknown]
  - Cardiac failure congestive [Unknown]
  - Bradycardia [Unknown]
  - Blood potassium decreased [Unknown]
  - Atrial enlargement [Unknown]
  - Haemorrhage subcutaneous [Unknown]
